FAERS Safety Report 17464714 (Version 1)
Quarter: 2020Q1

REPORT INFORMATION
  Report Type: Spontaneous
  Country: US (occurrence: US)
  Receive Date: 20200226
  Receipt Date: 20200226
  Transmission Date: 20200409
  Serious: No
  Sender: FDA-Public Use
  Company Number: NVSC2020US053696

PATIENT

DRUGS (2)
  1. PAZOPANIB [Suspect]
     Active Substance: PAZOPANIB
     Indication: BREAST CANCER
     Dosage: 600 MG, QD
     Route: 065
  2. ALISERTIB [Suspect]
     Active Substance: ALISERTIB
     Indication: BREAST CANCER
     Dosage: 20 MG, QD
     Route: 065

REACTIONS (1)
  - Drug ineffective [Unknown]
